FAERS Safety Report 18891078 (Version 2)
Quarter: 2021Q1

REPORT INFORMATION
  Report Type: Spontaneous
  Country: IT (occurrence: IT)
  Receive Date: 20210215
  Receipt Date: 20210316
  Transmission Date: 20210420
  Serious: Yes (Life-Threatening, Other)
  Sender: FDA-Public Use
  Company Number: IT-CELLTRION INC.-2021IT001714

PATIENT

DRUGS (4)
  1. HERZUMA [Suspect]
     Active Substance: TRASTUZUMAB-PKRB
     Indication: BREAST CANCER
     Dosage: 342.0 MG, ONCE (LOADING DOSE)
     Route: 042
     Dates: start: 20200211, end: 20200211
  2. DESAMETASONE [Concomitant]
     Active Substance: DEXAMETHASONE
     Dosage: 20 MG
     Route: 042
  3. PERJETA [Suspect]
     Active Substance: PERTUZUMAB
     Indication: BREAST CANCER
     Dosage: 420.0 MG, CYCLICAL (30 MG/ML, 1 VIAL)
     Route: 041
     Dates: start: 20200211, end: 20201210
  4. HERZUMA [Suspect]
     Active Substance: TRASTUZUMAB-PKRB
     Dosage: 342.0 MG, CYCLICAL (MAINTENANCE DOSE)
     Route: 041
     Dates: start: 20200211, end: 20201210

REACTIONS (6)
  - Wheezing [Recovered/Resolved]
  - Bronchospasm [Recovered/Resolved]
  - Rhonchi [Recovered/Resolved]
  - Hypokalaemia [Recovered/Resolved]
  - Dyspnoea [Recovered/Resolved]
  - Sinus tachycardia [Recovered/Resolved]

NARRATIVE: CASE EVENT DATE: 20201210
